FAERS Safety Report 8010979-7 (Version None)
Quarter: 2011Q4

REPORT INFORMATION
  Report Type: 
  Country: None (occurrence: None)
  Receive Date: 20111228
  Receipt Date: 20111222
  Transmission Date: 20120403
  Serious: Yes (Other)
  Sender: FDA-Public Use
  Company Number: HN-PFIZER INC-2011312768

PATIENT
  Sex: Male

DRUGS (6)
  1. ATACAND HCT [Concomitant]
  2. LYRICA [Concomitant]
  3. NORVASC [Suspect]
     Dosage: 10 MG, 1X/DAY
     Dates: start: 20000101
  4. CIPROFLOXACIN [Concomitant]
  5. PLAVIX [Concomitant]
  6. ATACAND [Concomitant]

REACTIONS (1)
  - RENAL HAEMORRHAGE [None]
